FAERS Safety Report 8307882-1 (Version None)
Quarter: 2012Q2

REPORT INFORMATION
  Report Type: 
  Country: None (occurrence: None)
  Receive Date: 20120424
  Receipt Date: 20120417
  Transmission Date: 20120825
  Serious: Yes (Other)
  Sender: FDA-Public Use
  Company Number: US-JNJFOC-20120408845

PATIENT

DRUGS (6)
  1. GRANULOCYTE COLONY-STIMULATING FACTOR [Suspect]
     Indication: ACUTE MYELOID LEUKAEMIA
     Route: 058
  2. TRETINOIN [Suspect]
     Indication: ACUTE MYELOID LEUKAEMIA
     Route: 048
  3. MIDOSTAURIN [Suspect]
     Dosage: COHORT 1
     Route: 048
  4. CLADRIBINE [Suspect]
     Indication: ACUTE MYELOID LEUKAEMIA
     Route: 042
  5. MIDOSTAURIN [Suspect]
     Indication: ACUTE MYELOID LEUKAEMIA
     Dosage: COHORT 2
     Route: 048
  6. CYTARABINE [Suspect]
     Indication: ACUTE MYELOID LEUKAEMIA
     Route: 042

REACTIONS (2)
  - HYPERGLYCAEMIA [None]
  - HAEMATOTOXICITY [None]
